FAERS Safety Report 7521135-0 (Version None)
Quarter: 2011Q2

REPORT INFORMATION
  Report Type: 
  Country: None (occurrence: None)
  Receive Date: 20110603
  Receipt Date: 20101207
  Transmission Date: 20111010
  Serious: Yes (Hospitalization)
  Sender: FDA-Public Use
  Company Number: JP-BAYER-201012441BYL

PATIENT
  Age: 66 Year
  Sex: Male
  Weight: 61 kg

DRUGS (5)
  1. NEXAVAR [Suspect]
     Dosage: 400 MG (DAILY DOSE), , ORAL
     Route: 048
     Dates: start: 20100716
  2. NICHIPHAGEN NISSIN [AMINOAC AC,GLYCYRRHIZIC AC,NH4 SALT,METHION] [Concomitant]
     Dosage: 6 DF (DAILY DOSE), , ORAL
     Route: 048
     Dates: start: 20070101
  3. URSO 250 [Concomitant]
     Dosage: 600 MG (DAILY DOSE), , ORAL
     Route: 048
     Dates: start: 20070101
  4. NEXAVAR [Suspect]
     Indication: HEPATIC NEOPLASM MALIGNANT
     Route: 048
     Dates: start: 20100510, end: 20100517
  5. NEXAVAR [Suspect]
     Dosage: 400 MG (DAILY DOSE), , ORAL
     Route: 048
     Dates: start: 20100701, end: 20100708

REACTIONS (2)
  - DUODENAL PERFORATION [None]
  - HEPATIC ENCEPHALOPATHY [None]
